FAERS Safety Report 6067803-1 (Version None)
Quarter: 2009Q1

REPORT INFORMATION
  Report Type: 
  Country: None (occurrence: None)
  Receive Date: 20090203
  Receipt Date: 20090123
  Transmission Date: 20090719
  Serious: Yes (Hospitalization)
  Sender: FDA-Public Use
  Company Number: 232289K08USA

PATIENT
  Age: 28 Year
  Sex: Female

DRUGS (7)
  1. REBIF [Suspect]
     Indication: MULTIPLE SCLEROSIS
     Dosage: 44 MCG, 3 IN 1 WEEKS, SUBCUTANEOUS
     Route: 058
     Dates: start: 20070517
  2. BACLOFEN [Suspect]
     Indication: MUSCLE SPASMS
     Dosage: 10 MG, 3 IN 1 DAYS,
  3. LYRICA [Suspect]
     Indication: FIBROMYALGIA
     Dosage: 75 MG, 3 IN 1 DAYS
  4. CYMBALTA [Suspect]
  5. VICODIN [Concomitant]
  6. XANAX [Concomitant]
  7. ADDERALL             (OBETROL /01345401//) [Concomitant]

REACTIONS (13)
  - AFFECT LABILITY [None]
  - APHAGIA [None]
  - APHASIA [None]
  - CONDITION AGGRAVATED [None]
  - DRUG TOXICITY [None]
  - FEELING ABNORMAL [None]
  - FLUID INTAKE REDUCED [None]
  - INTENTIONAL DRUG MISUSE [None]
  - LOCALISED INFECTION [None]
  - MULTIPLE SCLEROSIS [None]
  - MUSCULAR WEAKNESS [None]
  - SKIN LESION [None]
  - SKIN SWELLING [None]
